FAERS Safety Report 6645915-9 (Version None)
Quarter: 2010Q1

REPORT INFORMATION
  Report Type: 
  Country: None (occurrence: None)
  Receive Date: 20100323
  Receipt Date: 20100312
  Transmission Date: 20100710
  Serious: Yes (Hospitalization, Other)
  Sender: FDA-Public Use
  Company Number: PHHY2009BR54519

PATIENT
  Age: 67 Year
  Sex: Male
  Weight: 67 kg

DRUGS (1)
  1. FORASEQ [Suspect]
     Indication: EMPHYSEMA
     Dosage: INHALATION OF 1 CAPSULE OF EACH SUBSTANCE, TWICE A DAY (AT 09:30AM AND AT 21:30PM)

REACTIONS (2)
  - LUNG OPERATION [None]
  - NEOPLASM MALIGNANT [None]
